FAERS Safety Report 15993364 (Version 1)
Quarter: 2019Q1

REPORT INFORMATION
  Report Type: Spontaneous
  Country: AU (occurrence: AU)
  Receive Date: 20190222
  Receipt Date: 20190222
  Transmission Date: 20190418
  Serious: Yes (Other)
  Sender: FDA-Public Use
  Company Number: PHHY2019AU039680

PATIENT
  Sex: Male

DRUGS (1)
  1. TASIGNA [Suspect]
     Active Substance: NILOTINIB
     Indication: MUSCULOSKELETAL PAIN
     Dosage: UNK
     Route: 065
     Dates: start: 201709

REACTIONS (4)
  - Musculoskeletal pain [Unknown]
  - Condition aggravated [Unknown]
  - Quality of life decreased [Unknown]
  - Product use in unapproved indication [Unknown]

NARRATIVE: CASE EVENT DATE: 201709
